FAERS Safety Report 12323565 (Version 2)
Quarter: 2016Q2

REPORT INFORMATION
  Report Type: Spontaneous
  Country: US (occurrence: US)
  Receive Date: 20160502
  Receipt Date: 20160503
  Transmission Date: 20160815
  Serious: Yes (Hospitalization)
  Sender: FDA-Public Use
  Company Number: US-JNJFOC-20160419856

PATIENT
  Sex: Male

DRUGS (3)
  1. NORVIR [Suspect]
     Active Substance: RITONAVIR
     Indication: HIV INFECTION
     Route: 065
  2. PREZCOBIX [Suspect]
     Active Substance: COBICISTAT\DARUNAVIR ETHANOLATE
     Indication: HIV INFECTION
     Route: 048
  3. PREZISTA [Suspect]
     Active Substance: DARUNAVIR ETHANOLATE
     Indication: HIV INFECTION
     Route: 048

REACTIONS (4)
  - Renal injury [Unknown]
  - Hospitalisation [Unknown]
  - Blood creatinine increased [Recovering/Resolving]
  - Glomerular filtration rate decreased [Not Recovered/Not Resolved]
